FAERS Safety Report 17208819 (Version 4)
Quarter: 2020Q1

REPORT INFORMATION
  Report Type: Spontaneous
  Country: JP (occurrence: JP)
  Receive Date: 20191227
  Receipt Date: 20200330
  Transmission Date: 20200409
  Serious: Yes (Hospitalization, Other)
  Sender: FDA-Public Use
  Company Number: JP-JNJFOC-20191236690

PATIENT
  Age: 69 Year
  Sex: Male
  Weight: 62.6 kg

DRUGS (16)
  1. ADALAT [Concomitant]
     Active Substance: NIFEDIPINE
     Route: 048
  2. BAYASPIRIN [Concomitant]
     Active Substance: ASPIRIN
     Route: 048
  3. PRASUGREL HYDROCHLORIDE [Concomitant]
     Active Substance: PRASUGREL HYDROCHLORIDE
     Route: 048
  4. BROTIZOLAM [Concomitant]
     Active Substance: BROTIZOLAM
     Indication: PRODUCT USED FOR UNKNOWN INDICATION
     Route: 048
  5. CALTAN [Concomitant]
     Active Substance: CALCIUM CARBONATE
     Route: 048
  6. GLUFAST [Suspect]
     Active Substance: MITIGLINIDE
     Indication: DIABETES MELLITUS
     Route: 048
     Dates: start: 201908, end: 20190927
  7. TRAZENTA [Concomitant]
     Active Substance: LINAGLIPTIN
     Indication: PRODUCT USED FOR UNKNOWN INDICATION
     Route: 048
  8. ARTIST [Concomitant]
     Active Substance: CARVEDILOL
     Route: 048
  9. TAKECAB [Concomitant]
     Active Substance: VONOPRAZAN FUMURATE
     Route: 048
  10. PREDONINE [Concomitant]
     Active Substance: PREDNISOLONE
     Indication: PROSTATE CANCER
     Route: 048
     Dates: start: 20190802
  11. CRESTOR [Concomitant]
     Active Substance: ROSUVASTATIN CALCIUM
     Route: 048
  12. LASIX [Concomitant]
     Active Substance: FUROSEMIDE
     Route: 048
  13. ZYTIGA [Suspect]
     Active Substance: ABIRATERONE ACETATE
     Indication: PROSTATE CANCER
     Route: 048
     Dates: start: 20190802, end: 20190926
  14. RECALBON                           /06391801/ [Concomitant]
     Active Substance: MINODRONIC ACID
     Route: 048
  15. FOSRENOL [Concomitant]
     Active Substance: LANTHANUM CARBONATE
     Route: 048
  16. SEIBULE [Concomitant]
     Active Substance: MIGLITOL
     Route: 048

REACTIONS (1)
  - Stevens-Johnson syndrome [Recovered/Resolved]

NARRATIVE: CASE EVENT DATE: 20190919
